FAERS Safety Report 7713006-1 (Version None)
Quarter: 2011Q3

REPORT INFORMATION
  Report Type: 
  Country: None (occurrence: None)
  Receive Date: 20110826
  Receipt Date: 20110818
  Transmission Date: 20111222
  Serious: Yes (Other)
  Sender: FDA-Public Use
  Company Number: US-BAYER-2011-034673

PATIENT
  Age: 22 Year
  Sex: Female
  Weight: 61.224 kg

DRUGS (2)
  1. YASMIN [Suspect]
     Indication: ORAL CONTRACEPTION
     Dosage: UNK
     Dates: start: 20070101, end: 20090401
  2. YASMIN [Suspect]
     Indication: ACNE

REACTIONS (4)
  - VOMITING [None]
  - DYSKINESIA [None]
  - GALLBLADDER DISORDER [None]
  - PAIN [None]
